FAERS Safety Report 20380411 (Version 1)
Quarter: 2022Q1

REPORT INFORMATION
  Report Type: Spontaneous
  Country: CA (occurrence: CA)
  Receive Date: 20220127
  Receipt Date: 20220127
  Transmission Date: 20220423
  Serious: Yes (Other)
  Sender: FDA-Public Use
  Company Number: CA-MODERNATX, INC.-MOD-2022-445365

PATIENT
  Age: 41 Year
  Sex: Female

DRUGS (4)
  1. MODERNA COVID-19 VACCINE [Suspect]
     Active Substance: ELASOMERAN
     Indication: COVID-19 immunisation
     Dosage: UNK
     Route: 065
  2. ENTYVIO [Suspect]
     Active Substance: VEDOLIZUMAB
     Indication: Colitis ulcerative
     Dosage: 300 MG
     Route: 042
  3. ENTYVIO [Suspect]
     Active Substance: VEDOLIZUMAB
     Dosage: 300 MG
     Route: 042
  4. ENTYVIO [Suspect]
     Active Substance: VEDOLIZUMAB
     Dosage: 300 MG
     Route: 042

REACTIONS (9)
  - Alopecia [Unknown]
  - Colitis ulcerative [Unknown]
  - Constipation [Unknown]
  - Endometriosis [Unknown]
  - Frequent bowel movements [Unknown]
  - Pericarditis [Unknown]
  - Post-traumatic stress disorder [Unknown]
  - Rash [Unknown]
  - Urticaria [Unknown]
